FAERS Safety Report 25394807 (Version 3)
Quarter: 2025Q2

REPORT INFORMATION
  Report Type: Spontaneous
  Country: ES (occurrence: ES)
  Receive Date: 20250604
  Receipt Date: 20250623
  Transmission Date: 20250717
  Serious: Yes (Other)
  Sender: CELLTRION
  Company Number: ES-PFIZER INC-PV202400153623

PATIENT

DRUGS (12)
  1. MVASI [Suspect]
     Active Substance: BEVACIZUMAB-AWWB
     Indication: Respiratory papilloma
  2. BEVACIZUMAB [Suspect]
     Active Substance: BEVACIZUMAB
     Indication: Respiratory papilloma
     Route: 042
  3. BEVACIZUMAB [Suspect]
     Active Substance: BEVACIZUMAB
     Route: 042
  4. BEVACIZUMAB [Suspect]
     Active Substance: BEVACIZUMAB
     Route: 026
  5. BEVACIZUMAB [Suspect]
     Active Substance: BEVACIZUMAB
     Dosage: UNK, QMO (ONCE-MONTHLY)
     Route: 042
  6. BEVACIZUMAB [Suspect]
     Active Substance: BEVACIZUMAB
     Route: 026
  7. BEVACIZUMAB [Suspect]
     Active Substance: BEVACIZUMAB
     Dosage: UNK, QMO (ONCE-MONTHLY)
     Route: 042
  8. ERLOTINIB [Suspect]
     Active Substance: ERLOTINIB
     Indication: Respiratory papilloma
     Route: 048
  9. CELECOXIB [Suspect]
     Active Substance: CELECOXIB
     Indication: Respiratory papilloma
     Route: 048
  10. CELECOXIB [Suspect]
     Active Substance: CELECOXIB
     Route: 048
  11. TACROLIMUS [Concomitant]
     Active Substance: TACROLIMUS
     Indication: Immunosuppressant drug therapy
  12. CORTICOSTEROID NOS [Concomitant]
     Active Substance: CORTICOSTEROID NOS
     Indication: Immunosuppressant drug therapy

REACTIONS (15)
  - Respiratory failure [Unknown]
  - Laryngeal papilloma [Unknown]
  - Respiratory disorder [Unknown]
  - Renal impairment [Recovered/Resolved]
  - Postoperative thoracic procedure complication [Unknown]
  - Suture related complication [Unknown]
  - Respiratory papilloma [Unknown]
  - Stridor [Unknown]
  - Dysphonia [Unknown]
  - Proteinuria [Unknown]
  - Off label use [Unknown]
  - Off label use [Unknown]
  - Drug effective for unapproved indication [Unknown]
  - Product use issue [Unknown]
  - Product use in unapproved indication [Unknown]
